FAERS Safety Report 10896217 (Version 1)
Quarter: 2015Q1

REPORT INFORMATION
  Report Type: Not Available
  Country: CH (occurrence: CH)
  Receive Date: 20150309
  Receipt Date: 20150309
  Transmission Date: 20150721
  Serious: Yes (Other)
  Sender: FDA-Public Use
  Company Number: CH-BEH-2015049233

PATIENT
  Age: 70 Year
  Sex: Female

DRUGS (13)
  1. PANTOZOL [Concomitant]
     Active Substance: PANTOPRAZOLE SODIUM
     Dosage: STRENGHT: UNSPEC
  2. SYMBICORT [Concomitant]
     Active Substance: BUDESONIDE\FORMOTEROL FUMARATE DIHYDRATE
     Dosage: STRENGHT: UNSPEC
  3. BUDENOFALK [Concomitant]
     Active Substance: BUDESONIDE
     Dosage: STRENGHT: UNSPEC
  4. SPIRIVA [Concomitant]
     Active Substance: TIOTROPIUM BROMIDE MONOHYDRATE
     Dosage: STRENGHT: UNSPEC
  5. TOREM [Concomitant]
     Active Substance: TORSEMIDE
     Dosage: STRENGHT: UNSPEC
  6. DIPIPERON [Concomitant]
     Active Substance: PIPAMPERONE
     Dosage: STRENGHT: UNSPEC
  7. DUPHALAC [Concomitant]
     Active Substance: LACTULOSE
     Dosage: STRENGHT: UNSPEC
  8. PRIVIGEN [Suspect]
     Active Substance: HUMAN IMMUNOGLOBULIN G
     Indication: BLOOD IMMUNOGLOBULIN G DECREASED
     Dosage: STRENGTH:UNSPEC, DOSAGE REGIMEN:NOT PROVIDED, INF.AMPOULES, VIALS/BOTTLES: -, INF. SPEED:NOT KNOWN
     Route: 041
     Dates: start: 20150123, end: 20150123
  9. REMERON [Concomitant]
     Active Substance: MIRTAZAPINE
     Dosage: STRENGHT: UNSPEC
  10. KENDURAL [Concomitant]
     Dosage: STRENGHT: UNSPEC
  11. ASS CARDIO [Concomitant]
     Dosage: STRENGHT: UNSPEC
  12. ZOLDORM [Concomitant]
     Active Substance: ZOLPIDEM TARTRATE
     Dosage: STRENGHT: UNSPEC
  13. TEMESTA [Concomitant]
     Active Substance: LORAZEPAM
     Dosage: STRENGHT: UNSPEC

REACTIONS (3)
  - Hypertension [Recovered/Resolved]
  - Sinus tachycardia [Recovered/Resolved]
  - Dyspnoea [Recovered/Resolved]

NARRATIVE: CASE EVENT DATE: 20150123
